FAERS Safety Report 9303695 (Version 2)
Quarter: 2014Q3

REPORT INFORMATION
  Report Type: Spontaneous
  Country: US (occurrence: US)
  Receive Date: 20130522
  Receipt Date: 20140905
  Transmission Date: 20150326
  Serious: Yes (Hospitalization)
  Sender: FDA-Public Use
  Company Number: US-GLAXOSMITHKLINE-A0690187A

PATIENT
  Sex: Female
  Weight: 91.8 kg

DRUGS (7)
  1. AVANDAMET [Suspect]
     Active Substance: METFORMIN HYDROCHLORIDE\ROSIGLITAZONE MALEATE
     Indication: TYPE 2 DIABETES MELLITUS
     Route: 048
     Dates: start: 20041120, end: 200503
  2. GLUCOTROL [Concomitant]
     Active Substance: GLIPIZIDE
  3. DIABETA [Concomitant]
     Active Substance: GLYBURIDE
  4. ALBUTEROL. [Concomitant]
     Active Substance: ALBUTEROL
  5. AVANDIA [Suspect]
     Active Substance: ROSIGLITAZONE MALEATE
     Indication: TYPE 2 DIABETES MELLITUS
     Dosage: 4MG TWICE PER DAY
     Route: 048
     Dates: start: 20050204, end: 200712
  6. METFORMIN [Concomitant]
     Active Substance: METFORMIN HYDROCHLORIDE
  7. GLUCOPHAGE [Concomitant]
     Active Substance: METFORMIN HYDROCHLORIDE

REACTIONS (4)
  - Acute coronary syndrome [Unknown]
  - Myocardial infarction [Unknown]
  - Pain [Unknown]
  - Injury [Unknown]
